FAERS Safety Report 7015709-3 (Version None)
Quarter: 2010Q3

REPORT INFORMATION
  Report Type: 
  Country: None (occurrence: None)
  Receive Date: 20100927
  Receipt Date: 20100223
  Transmission Date: 20110219
  Serious: No
  Sender: FDA-Public Use
  Company Number: US-ASTRAZENECA-2010SE07839

PATIENT
  Age: 50 Year
  Sex: Female

DRUGS (5)
  1. ARIMIDEX [Suspect]
     Indication: BREAST CANCER
     Route: 048
  2. LYRICA [Concomitant]
     Indication: FIBROMYALGIA
  3. PROZAC [Concomitant]
  4. ADDERALL 10 [Concomitant]
  5. ZOMETA [Concomitant]

REACTIONS (1)
  - COELIAC DISEASE [None]
